FAERS Safety Report 14966251 (Version 1)
Quarter: 2018Q2

REPORT INFORMATION
  Report Type: Spontaneous
  Country: US (occurrence: US)
  Receive Date: 20180603
  Receipt Date: 20180603
  Transmission Date: 20180711
  Serious: No
  Sender: FDA-Public Use
  Company Number: US-BIOGEN-2018BI00588215

PATIENT
  Sex: Female

DRUGS (1)
  1. TECFIDERA [Suspect]
     Active Substance: DIMETHYL FUMARATE
     Indication: MULTIPLE SCLEROSIS
     Route: 065
     Dates: start: 20180319

REACTIONS (7)
  - Nasopharyngitis [Unknown]
  - Infection [Unknown]
  - Feeling abnormal [Unknown]
  - Burning sensation [Unknown]
  - Headache [Unknown]
  - Drug dose omission [Unknown]
  - Hypoacusis [Unknown]
